FAERS Safety Report 9026214 (Version 2)
Quarter: 2013Q1

REPORT INFORMATION
  Report Type: Spontaneous
  Country: US (occurrence: None)
  Receive Date: 20130104
  Receipt Date: 20130328
  Transmission Date: 20140127
  Serious: Yes (Death, Other)
  Sender: FDA-Public Use
  Company Number: TPA2012A11949

PATIENT
  Age: 84 Year
  Sex: Female
  Weight: 72.58 kg

DRUGS (5)
  1. ACTOS (PIOGLITAZONE HYDROCHLORIDE) (TABLETS) [Suspect]
     Indication: TYPE 2 DIABETES MELLITUS
     Dates: start: 2000, end: 20101128
  2. METFORMIN(METFORMIN) [Concomitant]
  3. AVANDIA(ROSIGLITAZONE MALEATE) [Concomitant]
  4. GLUCOPHAGE(METFORMIN HYDROCHLORIDE) [Concomitant]
  5. JANUVIA(SITAGLIPTIN PHOSPHATE) [Concomitant]

REACTIONS (1)
  - Bladder cancer [None]
